FAERS Safety Report 7034809-5 (Version None)
Quarter: 2010Q4

REPORT INFORMATION
  Report Type: 
  Country: None (occurrence: None)
  Receive Date: 20101008
  Receipt Date: 20100930
  Transmission Date: 20110411
  Serious: Yes (Hospitalization)
  Sender: FDA-Public Use
  Company Number: US-JNJFOC-20101000385

PATIENT
  Sex: Male
  Weight: 68.95 kg

DRUGS (8)
  1. RISPERDAL CONSTA [Suspect]
     Indication: SCHIZOAFFECTIVE DISORDER BIPOLAR TYPE
     Route: 030
  2. RISPERDAL [Suspect]
     Indication: SCHIZOAFFECTIVE DISORDER
     Route: 048
  3. LITHIUM CARBONATE [Suspect]
     Indication: BIPOLAR DISORDER
     Route: 048
  4. COGENTIN [Concomitant]
     Indication: PARKINSONIAN GAIT
     Dosage: 1 MG IN THE MORNING AND 2 MG AT NIGHT
     Route: 048
  5. COGENTIN [Concomitant]
     Indication: DROOLING
     Dosage: 1 MG IN THE MORNING AND 2 MG AT NIGHT
     Route: 048
  6. PRINIVIL [Concomitant]
     Indication: TENDON PAIN
     Route: 048
  7. LOPID [Concomitant]
     Indication: HYPERLIPIDAEMIA
     Route: 048
  8. MOM [Concomitant]
     Indication: CONSTIPATION
     Dosage: 30 CC EVERY OTHER DAY
     Route: 048

REACTIONS (8)
  - ABASIA [None]
  - ANTIPSYCHOTIC DRUG LEVEL INCREASED [None]
  - DEVICE LEAKAGE [None]
  - DYSARTHRIA [None]
  - INAPPROPRIATE SCHEDULE OF DRUG ADMINISTRATION [None]
  - MUSCULAR WEAKNESS [None]
  - SPEECH DISORDER [None]
  - SYRINGE ISSUE [None]
